FAERS Safety Report 6931230-2 (Version None)
Quarter: 2010Q3

REPORT INFORMATION
  Report Type: 
  Country: None (occurrence: None)
  Receive Date: 20100813
  Receipt Date: 20100805
  Transmission Date: 20110219
  Serious: Yes (Hospitalization)
  Sender: FDA-Public Use
  Company Number: 016784

PATIENT
  Sex: Female
  Weight: 83 kg

DRUGS (7)
  1. CERTOLIZUMAB PEGOL (CDP870) [Suspect]
     Indication: RHEUMATOID ARTHRITIS
     Dosage: 400 MG 1X/2 WEEKS SUBCUTANEOUS, 200 MG 1X/2 WEEKS SUBCUTANEOUS
     Route: 058
     Dates: start: 20060518, end: 20071114
  2. CERTOLIZUMAB PEGOL (CDP870) [Suspect]
     Indication: RHEUMATOID ARTHRITIS
     Dosage: 400 MG 1X/2 WEEKS SUBCUTANEOUS, 200 MG 1X/2 WEEKS SUBCUTANEOUS
     Route: 058
     Dates: start: 20071212, end: 20100804
  3. MELOXICAM [Concomitant]
  4. METHOTREXATE [Concomitant]
  5. FOLIC ACID [Concomitant]
  6. CALCIGRAN [Concomitant]
  7. IBANDRONATE SODIUM [Concomitant]

REACTIONS (8)
  - ASCITES [None]
  - CONDITION AGGRAVATED [None]
  - DERMATITIS [None]
  - HEPATIC CIRRHOSIS [None]
  - OSTEOPOROSIS [None]
  - OVARIAN CANCER [None]
  - SPLENITIS [None]
  - VENOUS INSUFFICIENCY [None]
